FAERS Safety Report 18374256 (Version 2)
Quarter: 2020Q4

REPORT INFORMATION
  Report Type: Spontaneous
  Country: FR (occurrence: FR)
  Receive Date: 20201013
  Receipt Date: 20201210
  Transmission Date: 20210114
  Serious: Yes (Hospitalization)
  Sender: FDA-Public Use
  Company Number: FR-AMGEN-FRASP2020163979

PATIENT
  Age: 61 Year
  Sex: Male
  Weight: 79 kg

DRUGS (3)
  1. OXALIPLATINE [Suspect]
     Active Substance: OXALIPLATIN
     Indication: RECTAL CANCER
     Dosage: 85 MILLIGRAM/SQ. METER X6 PERIODE
     Route: 042
     Dates: start: 202005, end: 202008
  2. FLUOROURACILE [Suspect]
     Active Substance: FLUOROURACIL
     Indication: RECTAL CANCER
     Dosage: 1 DOSAGE FORM
     Route: 042
     Dates: start: 202005
  3. VECTIBIX [Suspect]
     Active Substance: PANITUMUMAB
     Indication: RECTAL CANCER
     Dosage: 20 MILLIGRAM PER MILLILITRE
     Route: 042
     Dates: start: 20200727

REACTIONS (1)
  - Thrombocytopenic purpura [Recovering/Resolving]

NARRATIVE: CASE EVENT DATE: 20200908
